FAERS Safety Report 9836797 (Version 1)
Quarter: 2014Q1

REPORT INFORMATION
  Report Type: Spontaneous
  Country: US (occurrence: None)
  Receive Date: 20140116
  Receipt Date: 20140116
  Transmission Date: 20141002
  Serious: Yes (Hospitalization)
  Sender: FDA-Public Use
  Company Number: None

PATIENT
  Age: 84 Year
  Sex: Female

DRUGS (1)
  1. FERAHEME [Suspect]
     Indication: NEOPLASM MALIGNANT
     Route: 042
     Dates: start: 20130829, end: 20130829

REACTIONS (7)
  - Dyspnoea [None]
  - Oxygen saturation decreased [None]
  - Nausea [None]
  - Abdominal distension [None]
  - Abdominal distension [None]
  - Musculoskeletal discomfort [None]
  - Blood pressure increased [None]
